FAERS Safety Report 18037828 (Version 3)
Quarter: 2020Q3

REPORT INFORMATION
  Report Type: Report from Study
  Country: US (occurrence: US)
  Receive Date: 20200717
  Receipt Date: 20200825
  Transmission Date: 20201103
  Serious: Yes (Hospitalization)
  Sender: FDA-Public Use
  Company Number: US-JNJFOC-20200712303

PATIENT
  Age: 52 Year
  Sex: Male

DRUGS (3)
  1. SPRAVATO [Suspect]
     Active Substance: ESKETAMINE
     Indication: DEPRESSION
     Dosage: 56 MG, 7 DOSES
     Dates: start: 20191111, end: 20191205
  2. SPRAVATO [Suspect]
     Active Substance: ESKETAMINE
     Dates: start: 20200707, end: 20200707
  3. SPRAVATO [Suspect]
     Active Substance: ESKETAMINE
     Dosage: 84 MG, 27 DOSES
     Dates: start: 20191210, end: 20200629

REACTIONS (5)
  - Seizure [Recovered/Resolved]
  - Dysarthria [Recovered/Resolved]
  - Muscle twitching [Recovered/Resolved]
  - Facial paralysis [Recovered/Resolved]
  - Hypertension [Recovered/Resolved]

NARRATIVE: CASE EVENT DATE: 20200707
